FAERS Safety Report 7941340-9 (Version None)
Quarter: 2011Q4

REPORT INFORMATION
  Report Type: 
  Country: None (occurrence: None)
  Receive Date: 20111122
  Receipt Date: 20111122
  Transmission Date: 20120403
  Serious: Yes (Life-Threatening, Disabling)
  Sender: FDA-Public Use
  Company Number: None

PATIENT
  Age: 63 Year
  Sex: Female
  Weight: 77.1115 kg

DRUGS (1)
  1. ZYPREXA [Suspect]
     Dosage: 10 MG 1 Q HS PO 2 YRS, STOP 6 MONTHS
     Route: 048

REACTIONS (14)
  - NAUSEA [None]
  - HUNGER [None]
  - DYSGRAPHIA [None]
  - DROOLING [None]
  - PARKINSON'S DISEASE [None]
  - FATIGUE [None]
  - IMPAIRED WORK ABILITY [None]
  - TREMOR [None]
  - SUICIDAL IDEATION [None]
  - SALIVARY HYPERSECRETION [None]
  - GAIT DISTURBANCE [None]
  - MASKED FACIES [None]
  - ANXIETY [None]
  - INSOMNIA [None]
